FAERS Safety Report 9340482 (Version 1)
Quarter: 2013Q2

REPORT INFORMATION
  Report Type: Spontaneous
  Country: US (occurrence: None)
  Receive Date: 20130610
  Receipt Date: 20130610
  Transmission Date: 20140414
  Serious: Yes (Life-Threatening)
  Sender: FDA-Public Use
  Company Number: None

PATIENT
  Age: 73 Year
  Sex: Female
  Weight: 42.9 kg

DRUGS (1)
  1. RIVAROXABAN [Suspect]
     Indication: ATRIAL FIBRILLATION
     Dosage: ONCE DAILY
     Route: 048
     Dates: start: 20130125, end: 20130519

REACTIONS (5)
  - Haemorrhage intracranial [None]
  - Fall [None]
  - Subdural haematoma [None]
  - Blood creatinine increased [None]
  - Creatinine renal clearance decreased [None]
